FAERS Safety Report 8399670-5 (Version None)
Quarter: 2012Q2

REPORT INFORMATION
  Report Type: 
  Country: None (occurrence: None)
  Receive Date: 20120531
  Receipt Date: 20120525
  Transmission Date: 20120825
  Serious: Yes (Life-Threatening, Hospitalization)
  Sender: FDA-Public Use
  Company Number: US-ELI_LILLY_AND_COMPANY-US201205010028

PATIENT
  Age: 89 Year
  Sex: Male

DRUGS (1)
  1. GEMZAR [Suspect]
     Indication: PANCREATIC CARCINOMA
     Dosage: UNK, UNKNOWN
     Route: 065
     Dates: start: 20120503

REACTIONS (9)
  - RESPIRATORY DISTRESS [None]
  - DYSPNOEA [None]
  - DROOLING [None]
  - RENAL FAILURE [None]
  - ENDOTRACHEAL INTUBATION [None]
  - BLOOD POTASSIUM INCREASED [None]
  - CARBON DIOXIDE INCREASED [None]
  - OXYGEN SATURATION DECREASED [None]
  - DYSKINESIA [None]
